FAERS Safety Report 16037583 (Version 3)
Quarter: 2019Q3

REPORT INFORMATION
  Report Type: Spontaneous
  Country: US (occurrence: US)
  Receive Date: 20190305
  Receipt Date: 20190911
  Transmission Date: 20191004
  Serious: No
  Sender: FDA-Public Use
  Company Number: US-PFIZER INC-2019094756

PATIENT
  Age: 36 Year
  Sex: Female

DRUGS (1)
  1. IBRANCE [Suspect]
     Active Substance: PALBOCICLIB
     Dosage: 125 MG, CYCLIC (1 CAPSULE DAILY FOR 21 DAYS OUT OF A 28 DAY CYCLE)
     Route: 048
     Dates: start: 20181201

REACTIONS (8)
  - Dysgeusia [Unknown]
  - Alopecia [Unknown]
  - Nausea [Unknown]
  - Weight decreased [Unknown]
  - Gastric disorder [Unknown]
  - Vomiting [Unknown]
  - Headache [Unknown]
  - Head discomfort [Unknown]

NARRATIVE: CASE EVENT DATE: 201902
